FAERS Safety Report 4698958-9 (Version None)
Quarter: 2005Q2

REPORT INFORMATION
  Report Type: 
  Country: None (occurrence: None)
  Receive Date: 20050623
  Receipt Date: 20050623
  Transmission Date: 20051028
  Serious: Yes (Life-Threatening)
  Sender: FDA-Public Use
  Company Number: None

PATIENT
  Age: 33 Year
  Sex: Female
  Weight: 60.782 kg

DRUGS (2)
  1. HERCEPTIN [Suspect]
     Indication: BREAST CANCER METASTATIC
     Dosage: 6 MG/KG Q 3 WEEKS   IV
     Route: 042
     Dates: start: 20040801
  2. ZOMETA [Concomitant]

REACTIONS (6)
  - BURNING SENSATION [None]
  - CHEST DISCOMFORT [None]
  - DYSPNOEA [None]
  - INFUSION RELATED REACTION [None]
  - MUSCULOSKELETAL STIFFNESS [None]
  - PRURITUS GENERALISED [None]
